FAERS Safety Report 8190664-1 (Version None)
Quarter: 2012Q1

REPORT INFORMATION
  Report Type: 
  Country: None (occurrence: None)
  Receive Date: 20120305
  Receipt Date: 20120222
  Transmission Date: 20120608
  Serious: Yes (Other)
  Sender: FDA-Public Use
  Company Number: 2012P1008396

PATIENT
  Age: 81 Year
  Sex: Female

DRUGS (10)
  1. PEPCID [Suspect]
     Indication: ABDOMINAL PAIN UPPER
     Dosage: 10 MGL; QD; PO
     Route: 048
     Dates: start: 20120117, end: 20120127
  2. CLARITHROMYCIN [Concomitant]
  3. CANDESARTAN CILEXETIL [Concomitant]
  4. DEXTROMETHORPHAN HYDROBROMIDE [Concomitant]
  5. DILTIAZEM HCL [Concomitant]
  6. ADONA [Concomitant]
  7. TRANSAMINE CAP [Concomitant]
  8. METHYCOBAL [Concomitant]
  9. PEPCID [Suspect]
     Indication: ABDOMINAL PAIN UPPER
     Dosage: 20 MG; BID; PO
     Route: 048
     Dates: start: 20120213, end: 20120215
  10. ZETIA [Concomitant]

REACTIONS (1)
  - PURPURA [None]
